FAERS Safety Report 5287867-2 (Version None)
Quarter: 2007Q2

REPORT INFORMATION
  Report Type: 
  Country: None (occurrence: None)
  Receive Date: 20070405
  Receipt Date: 20070402
  Transmission Date: 20071010
  Serious: Yes (Hospitalization)
  Sender: FDA-Public Use
  Company Number: IT-BAYER-200611566GDS

PATIENT
  Age: 85 Year
  Sex: Male
  Weight: 64 kg

DRUGS (6)
  1. SORAFENIB [Suspect]
     Indication: HEPATIC NEOPLASM MALIGNANT
     Dosage: TOTAL DAILY DOSE: 400 MG
     Route: 048
     Dates: start: 20060214, end: 20060312
  2. SORAFENIB [Suspect]
     Dosage: TOTAL DAILY DOSE: 400 MG
     Route: 048
     Dates: start: 20060313, end: 20060412
  3. NITRODERM [Concomitant]
     Indication: MITRAL VALVE INCOMPETENCE
     Route: 062
     Dates: start: 20060113
  4. KANRENOL [Concomitant]
     Indication: OEDEMA PERIPHERAL
     Route: 048
     Dates: start: 20060113
  5. AMIODARONE HCL [Concomitant]
     Indication: ATRIAL FIBRILLATION
     Route: 042
     Dates: start: 20060406, end: 20060407
  6. BRANCHED AMINO ACIDS [Concomitant]
     Indication: HEPATIC FAILURE
     Route: 042
     Dates: start: 20060410, end: 20060418

REACTIONS (1)
  - JAUNDICE [None]
